FAERS Safety Report 24543373 (Version 1)
Quarter: 2024Q4

REPORT INFORMATION
  Report Type: Report from Study
  Country: US (occurrence: US)
  Receive Date: 20241024
  Receipt Date: 20241024
  Transmission Date: 20250114
  Serious: Yes (Other)
  Sender: ABBVIE
  Company Number: US-ABBVIE-5972819

PATIENT
  Sex: Female

DRUGS (1)
  1. VENCLEXTA [Suspect]
     Active Substance: VENETOCLAX
     Indication: Chronic lymphocytic leukaemia
     Dosage: 100 MG TABLET: TAKE 4 TABLET(S) BY MOUTH  EVERY DAY
     Route: 048

REACTIONS (3)
  - Cataract [Unknown]
  - Blood pressure increased [Unknown]
  - Exercise lack of [Unknown]

NARRATIVE: CASE EVENT DATE: 20240101
